FAERS Safety Report 16227789 (Version 7)
Quarter: 2020Q4

REPORT INFORMATION
  Report Type: Report from Study
  Country: DE (occurrence: DE)
  Receive Date: 20190423
  Receipt Date: 20201205
  Transmission Date: 20210113
  Serious: Yes (Other)
  Sender: FDA-Public Use
  Company Number: PHHY2019DE089783

PATIENT
  Age: 57 Year
  Sex: Male

DRUGS (4)
  1. COSENTYX [Suspect]
     Active Substance: SECUKINUMAB
     Indication: AXIAL SPONDYLOARTHRITIS
     Dosage: 150 MG (UP-TITRATION)
     Route: 065
     Dates: start: 20140101
  2. DICLOFENAC [Suspect]
     Active Substance: DICLOFENAC
     Indication: AXIAL SPONDYLOARTHRITIS
     Dosage: 100 MG, QW (1 DAY PER WEEK)
     Route: 065
     Dates: end: 20190315
  3. COSENTYX [Suspect]
     Active Substance: SECUKINUMAB
     Dosage: 150 MG, QMO (Q4W)
     Route: 065
     Dates: end: 20190214
  4. IBUPROFEN. [Suspect]
     Active Substance: IBUPROFEN
     Indication: AXIAL SPONDYLOARTHRITIS
     Dosage: 600 MG, QD
     Route: 065
     Dates: end: 20140101

REACTIONS (9)
  - Hepatic mass [Not Recovered/Not Resolved]
  - Productive cough [Unknown]
  - Rash [Unknown]
  - Nausea [Unknown]
  - Fall [Unknown]
  - Herpes zoster [Unknown]
  - Oral candidiasis [Unknown]
  - Rib fracture [Unknown]
  - Diarrhoea [Unknown]

NARRATIVE: CASE EVENT DATE: 20190214
